FAERS Safety Report 18010818 (Version 1)
Quarter: 2020Q3

REPORT INFORMATION
  Report Type: Spontaneous
  Country: IN (occurrence: IN)
  Receive Date: 20200711
  Receipt Date: 20200711
  Transmission Date: 20201103
  Serious: Yes (Other)
  Sender: FDA-Public Use
  Company Number: IN-MACLEODS PHARMACEUTICALS US LTD-MAC2020027106

PATIENT

DRUGS (4)
  1. OLANZAPINE 2.5MG TABLET [Suspect]
     Active Substance: OLANZAPINE
     Indication: BIPOLAR DISORDER
     Dosage: 2.5 MILLIGRAM, QD DURING BED TIME (HS)
     Route: 065
  2. LORAZEPAM. [Concomitant]
     Active Substance: LORAZEPAM
     Indication: BIPOLAR DISORDER
     Dosage: 1 MILLIGRAM, QD DURING BED TIME (HS)
     Route: 065
  3. LORAZEPAM. [Concomitant]
     Active Substance: LORAZEPAM
     Indication: HYPOMANIA
  4. OLANZAPINE 2.5MG TABLET [Suspect]
     Active Substance: OLANZAPINE
     Indication: HYPOMANIA

REACTIONS (2)
  - Hyponatraemia [Recovered/Resolved]
  - Inappropriate antidiuretic hormone secretion [Unknown]
